FAERS Safety Report 5098693-1 (Version None)
Quarter: 2006Q3

REPORT INFORMATION
  Report Type: 
  Country: None (occurrence: None)
  Receive Date: 20060905
  Receipt Date: 20060822
  Transmission Date: 20061208
  Serious: Yes (Hospitalization)
  Sender: FDA-Public Use
  Company Number: US017511

PATIENT
  Age: 46 Year
  Sex: Female
  Weight: 66.9056 kg

DRUGS (7)
  1. PROVIGIL [Suspect]
     Indication: HYPERSOMNIA
     Dosage: 200 MG QD ORAL
     Route: 048
     Dates: start: 20060201
  2. PROVIGIL [Suspect]
     Indication: HYPERSOMNIA
     Dosage: 200 MG ONCE ORAL
     Route: 048
     Dates: start: 20060424, end: 20060424
  3. PROVIGIL [Suspect]
     Indication: HYPERSOMNIA
     Dosage: 200 MG ONCE ORAL
     Route: 048
     Dates: start: 20060504, end: 20060504
  4. CLARITIN [Concomitant]
  5. NEXIUM [Concomitant]
  6. PROZAC [Concomitant]
  7. LAMICTAL [Concomitant]

REACTIONS (16)
  - ALANINE AMINOTRANSFERASE INCREASED [None]
  - CONNECTIVE TISSUE DISORDER [None]
  - CONSTIPATION [None]
  - DRUG ERUPTION [None]
  - FACIAL PALSY [None]
  - GAMMA-GLUTAMYLTRANSFERASE INCREASED [None]
  - GRANULOMA [None]
  - HEADACHE [None]
  - HYPERSENSITIVITY [None]
  - NAUSEA [None]
  - PAIN [None]
  - SINUS CONGESTION [None]
  - STEVENS-JOHNSON SYNDROME [None]
  - VIRAL RASH [None]
  - VOMITING [None]
  - WHITE BLOOD CELL COUNT INCREASED [None]
